FAERS Safety Report 4263258-8 (Version None)
Quarter: 2004Q1

REPORT INFORMATION
  Report Type: 
  Country: None (occurrence: None)
  Receive Date: 20040105
  Receipt Date: 20031230
  Transmission Date: 20041129
  Serious: Yes (Hospitalization)
  Sender: FDA-Public Use
  Company Number: US-GLAXOSMITHKLINE-A0490841A

PATIENT
  Age: 49 Year
  Sex: Female

DRUGS (8)
  1. LAMICTAL [Suspect]
     Indication: DEPRESSION
     Dosage: 75MG PER DAY
     Route: 048
     Dates: start: 20020901
  2. DEPAKOTE [Concomitant]
  3. BUSPAR [Concomitant]
  4. LORAZEPAM [Concomitant]
  5. SYNTHROID [Concomitant]
  6. RISPERDAL [Concomitant]
  7. LISINOPRIL [Concomitant]
  8. METOPROLOL [Concomitant]

REACTIONS (18)
  - ABDOMINAL DISTENSION [None]
  - ANXIETY [None]
  - ASTHENIA [None]
  - DEAFNESS [None]
  - DEPRESSION [None]
  - DIPLOPIA [None]
  - DIZZINESS [None]
  - DROOLING [None]
  - DYSPNOEA [None]
  - EMOTIONAL DISORDER [None]
  - EYE ROLLING [None]
  - FEAR [None]
  - HYPERSOMNIA [None]
  - RETINAL DEGENERATION [None]
  - SWELLING FACE [None]
  - THINKING ABNORMAL [None]
  - TREMOR [None]
  - VISION BLURRED [None]
